FAERS Safety Report 13709729 (Version 9)
Quarter: 2018Q1

REPORT INFORMATION
  Report Type: Report from Study
  Country: US (occurrence: US)
  Receive Date: 20170703
  Receipt Date: 20180205
  Transmission Date: 20180508
  Serious: Yes (Hospitalization, Other)
  Sender: FDA-Public Use
  Company Number: US-GILEAD-2017-0281061

PATIENT
  Age: 65 Year
  Sex: Female

DRUGS (1)
  1. AMBRISENTAN [Suspect]
     Active Substance: AMBRISENTAN
     Indication: PRODUCT USED FOR UNKNOWN INDICATION
     Dosage: 10 MG, QD
     Route: 065
     Dates: start: 20140527

REACTIONS (23)
  - Spinal operation [Unknown]
  - Salivary hypersecretion [Not Recovered/Not Resolved]
  - Loss of personal independence in daily activities [Not Recovered/Not Resolved]
  - Tooth deposit [Not Recovered/Not Resolved]
  - Nasopharyngitis [Not Recovered/Not Resolved]
  - Swelling [Unknown]
  - Concussion [Unknown]
  - Head injury [Unknown]
  - Intervertebral disc degeneration [Not Recovered/Not Resolved]
  - Laceration [Unknown]
  - Fall [Unknown]
  - Scratch [Unknown]
  - Headache [Not Recovered/Not Resolved]
  - Loss of consciousness [Unknown]
  - Vomiting [Unknown]
  - Fall [Unknown]
  - Balance disorder [Unknown]
  - Dental plaque [Not Recovered/Not Resolved]
  - Cerebral haemorrhage [Unknown]
  - Weight decreased [Unknown]
  - Hypersensitivity [Unknown]
  - Neck pain [Unknown]
  - Product use issue [Unknown]

NARRATIVE: CASE EVENT DATE: 201705
